FAERS Safety Report 4319838-4 (Version None)
Quarter: 2004Q1

REPORT INFORMATION
  Report Type: 
  Country: None (occurrence: None)
  Receive Date: 20040319
  Receipt Date: 20040309
  Transmission Date: 20041129
  Serious: Yes (Other)
  Sender: FDA-Public Use
  Company Number: PHHO2004PY03759

PATIENT

DRUGS (3)
  1. GLEEVEC [Suspect]
     Dosage: 600 MG, QD
     Route: 048
     Dates: start: 20030930
  2. GLEEVEC [Suspect]
     Dosage: NO TREATMENT
  3. GLEEVEC [Suspect]
     Route: 048

REACTIONS (1)
  - HAEMOLYTIC ANAEMIA [None]
